FAERS Safety Report 10934730 (Version 3)
Quarter: 2015Q2

REPORT INFORMATION
  Report Type: Spontaneous
  Country: US (occurrence: US)
  Receive Date: 20150320
  Receipt Date: 20150407
  Transmission Date: 20150821
  Serious: Yes (Life-Threatening, Congenital Anomaly, Other)
  Sender: FDA-Public Use
  Company Number: US-ELI_LILLY_AND_COMPANY-US201503006295

PATIENT

DRUGS (1)
  1. PROZAC [Suspect]
     Active Substance: FLUOXETINE HYDROCHLORIDE
     Indication: PRODUCT USED FOR UNKNOWN INDICATION
     Dosage: UNK, UNKNOWN
     Route: 064

REACTIONS (16)
  - Hypoplastic left heart syndrome [Unknown]
  - Pulmonary artery stenosis [Unknown]
  - Seizure [Unknown]
  - Foetal exposure during pregnancy [Unknown]
  - Cardiomegaly [Unknown]
  - Supraventricular tachycardia [Unknown]
  - Dilatation ventricular [Unknown]
  - Tricuspid valve incompetence [Unknown]
  - Cerebrovascular accident [Unknown]
  - Post procedural infection [Unknown]
  - Brain injury [Unknown]
  - Right ventricular hypertrophy [Unknown]
  - Talipes [Unknown]
  - Hypoxia [Unknown]
  - Vocal cord paralysis [Unknown]
  - Poor feeding infant [Recovered/Resolved]
